FAERS Safety Report 5465630-7 (Version None)
Quarter: 2007Q3

REPORT INFORMATION
  Report Type: 
  Country: None (occurrence: None)
  Receive Date: 20070920
  Receipt Date: 20070920
  Transmission Date: 20080115
  Serious: Yes (Other)
  Sender: FDA-Public Use
  Company Number: None

PATIENT
  Age: 40 Year
  Sex: Female
  Weight: 63.5036 kg

DRUGS (1)
  1. PRAVASTATIN [Suspect]
     Indication: TYPE 1 DIABETES MELLITUS
     Dosage: ONE TABLET EVERY EVENING BY MOUTH
     Route: 048
     Dates: start: 20050101, end: 20070101

REACTIONS (3)
  - DYSPEPSIA [None]
  - PHARMACEUTICAL PRODUCT COMPLAINT [None]
  - POOR QUALITY DRUG ADMINISTERED [None]
